FAERS Safety Report 12535897 (Version 1)
Quarter: 2016Q3

REPORT INFORMATION
  Report Type: Report from Study
  Country: CZ (occurrence: CZ)
  Receive Date: 20160707
  Receipt Date: 20160707
  Transmission Date: 20161109
  Serious: Yes (Hospitalization)
  Sender: FDA-Public Use
  Company Number: CZ-UCBSA-2016024969

PATIENT
  Age: 44 Year
  Sex: Male
  Weight: 109 kg

DRUGS (3)
  1. CERTOLIZUMAB PEGOL [Suspect]
     Active Substance: CERTOLIZUMAB PEGOL
     Indication: PSORIASIS
     Dosage: UNK
     Route: 058
     Dates: end: 20160620
  2. ACIDUM FOLICUM [Concomitant]
     Active Substance: FOLIC ACID
     Indication: PSORIASIS
     Dosage: 10 MG, UNK
     Route: 048
     Dates: start: 20160418
  3. PRESTARIUM NEO [Concomitant]
     Active Substance: PERINDOPRIL ARGININE
     Indication: HYPERTENSION
     Dosage: 5 MG, UNK
     Route: 048
     Dates: start: 20151204

REACTIONS (1)
  - Psoriasis [Recovering/Resolving]

NARRATIVE: CASE EVENT DATE: 20160615
